FAERS Safety Report 6259536-3 (Version None)
Quarter: 2009Q3

REPORT INFORMATION
  Report Type: 
  Country: None (occurrence: None)
  Receive Date: 20090708
  Receipt Date: 20090625
  Transmission Date: 20100115
  Serious: Yes (Death, Hospitalization)
  Sender: FDA-Public Use
  Company Number: IN-ELI_LILLY_AND_COMPANY-IN200906005974

PATIENT
  Sex: Male
  Weight: 35 kg

DRUGS (6)
  1. PEMETREXED [Suspect]
     Indication: NON-SMALL CELL LUNG CANCER
     Dosage: 500 MG/M2, ON DAY 1
     Route: 042
     Dates: start: 20090607
  2. TARCEVA [Suspect]
     Indication: NON-SMALL CELL LUNG CANCER
     Dosage: 150 MG, DAYS 2-14
     Route: 048
     Dates: start: 20090608
  3. FOLIC ACID [Concomitant]
     Indication: SUPPLEMENTATION THERAPY
     Dosage: 1 MG, DAILY (1/D)
     Route: 048
     Dates: start: 20090601, end: 20090624
  4. VITAMIN B-12 [Concomitant]
     Indication: SUPPLEMENTATION THERAPY
     Dosage: 5 MG, DAILY (1/D)
     Route: 030
     Dates: start: 20090601, end: 20090601
  5. DEXAMETHASONE [Concomitant]
     Dosage: 4 MG, 2/D
     Route: 048
     Dates: start: 19300606, end: 20090608
  6. IRON [Concomitant]
     Indication: ANAEMIA PROPHYLAXIS
     Dates: start: 20090618, end: 20090624

REACTIONS (1)
  - SEPSIS [None]
